FAERS Safety Report 22369513 (Version 2)
Quarter: 2023Q4

REPORT INFORMATION
  Report Type: Spontaneous
  Country: US (occurrence: US)
  Receive Date: 20230526
  Receipt Date: 20231025
  Transmission Date: 20240110
  Serious: No
  Sender: FDA-Public Use
  Company Number: US-BIOCON RESEARCH LIMITED-BCN-2023-000756

PATIENT
  Sex: Male

DRUGS (1)
  1. ROSUVASTATIN CALCIUM [Suspect]
     Active Substance: ROSUVASTATIN CALCIUM
     Indication: Product used for unknown indication
     Dosage: FOR ALMOST 1 YEAR

REACTIONS (4)
  - Malaise [Unknown]
  - Product colour issue [Unknown]
  - Product size issue [Unknown]
  - Product container issue [Unknown]
